FAERS Safety Report 22089908 (Version 6)
Quarter: 2023Q2

REPORT INFORMATION
  Report Type: Report from Study
  Country: IL (occurrence: IL)
  Receive Date: 20230313
  Receipt Date: 20230614
  Transmission Date: 20230722
  Serious: Yes (Hospitalization)
  Sender: FDA-Public Use
  Company Number: IL-ABBVIE-4338463

PATIENT
  Age: 79 Year
  Sex: Male

DRUGS (3)
  1. CARBIDOPA\LEVODOPA [Suspect]
     Active Substance: CARBIDOPA\LEVODOPA
     Indication: Parkinson^s disease
     Dosage: CONTINUOUS DOSAGE (ML/H)  1.6, EXTRA DOSAGE (ML)  1.0
     Route: 050
  2. CARBIDOPA\LEVODOPA [Suspect]
     Active Substance: CARBIDOPA\LEVODOPA
     Route: 050
     Dates: start: 20190623
  3. CARBIDOPA\LEVODOPA [Suspect]
     Active Substance: CARBIDOPA\LEVODOPA
     Dosage: MORNING DOSAGE(ML) 2.9, CONTINUOUS DOSAGE (ML/H) 1.6 , EXTRA DOSAGE (ML) 1.0 ? DURATION TEXT: THE...
     Route: 050

REACTIONS (7)
  - Pelvic fracture [Recovering/Resolving]
  - Fall [Recovering/Resolving]
  - Constipation [Recovering/Resolving]
  - Stoma site discharge [Recovering/Resolving]
  - Wrong technique in device usage process [Recovered/Resolved]
  - Pain [Unknown]
  - Stoma site pain [Recovering/Resolving]

NARRATIVE: CASE EVENT DATE: 20230310
